FAERS Safety Report 5806528-1 (Version None)
Quarter: 2008Q3

REPORT INFORMATION
  Report Type: 
  Country: None (occurrence: None)
  Receive Date: 20080710
  Receipt Date: 20080703
  Transmission Date: 20090109
  Serious: Yes (Other)
  Sender: FDA-Public Use
  Company Number: US-BOEHRINGER INGELHEIM GMBH, GERMANY-2008-BP-10303RO

PATIENT
  Age: 55 Year
  Sex: Female

DRUGS (4)
  1. LITHIUM CARBONATE [Suspect]
     Indication: DEPRESSION
     Dates: start: 20060601
  2. TAMOXIFEN CITRATE [Suspect]
     Indication: BREAST CANCER STAGE I
     Dates: start: 20041201, end: 20060601
  3. ANTIDEPRESSANTS [Concomitant]
     Indication: DEPRESSION
  4. STIMULANTS [Concomitant]
     Indication: DEPRESSION

REACTIONS (2)
  - DEPRESSION [None]
  - DRUG INEFFECTIVE [None]
